FAERS Safety Report 17519517 (Version 1)
Quarter: 2020Q1

REPORT INFORMATION
  Report Type: Spontaneous
  Country: US (occurrence: US)
  Receive Date: 20200309
  Receipt Date: 20200309
  Transmission Date: 20200409
  Serious: Yes (Hospitalization)
  Sender: FDA-Public Use
  Company Number: None

PATIENT
  Age: 51 Year
  Sex: Male

DRUGS (1)
  1. DOXORUBICIN [Suspect]
     Active Substance: DOXORUBICIN
     Indication: NON-HODGKIN^S LYMPHOMA

REACTIONS (3)
  - Pulmonary alveolar haemorrhage [None]
  - Cardiomyopathy [None]
  - Pulmonary oedema [None]

NARRATIVE: CASE EVENT DATE: 20191026
